FAERS Safety Report 4716322-0 (Version None)
Quarter: 2005Q3

REPORT INFORMATION
  Report Type: 
  Country: None (occurrence: None)
  Receive Date: 20050711
  Receipt Date: 20040512
  Transmission Date: 20060218
  Serious: Yes (Other)
  Sender: FDA-Public Use
  Company Number: 367351

PATIENT
  Age: 75 Year
  Sex: Female

DRUGS (2)
  1. CELLCEPT [Suspect]
     Dosage: 2 GRAM DAILY ORAL
     Route: 048
     Dates: start: 20030226
  2. PREDNISONE [Concomitant]

REACTIONS (1)
  - GINGIVAL HYPERTROPHY [None]
